FAERS Safety Report 17223588 (Version 2)
Quarter: 2020Q1

REPORT INFORMATION
  Report Type: Spontaneous
  Country: US (occurrence: US)
  Receive Date: 20200102
  Receipt Date: 20200303
  Transmission Date: 20200409
  Serious: Yes (Hospitalization)
  Sender: FDA-Public Use
  Company Number: US-ROCHE-2512655

PATIENT
  Sex: Male

DRUGS (2)
  1. ESBRIET [Suspect]
     Active Substance: PIRFENIDONE
     Dosage: 1 TAB, ONGOING: YES
     Route: 048
     Dates: start: 20190331
  2. ESBRIET [Suspect]
     Active Substance: PIRFENIDONE
     Indication: IDIOPATHIC PULMONARY FIBROSIS
     Dosage: 1 TAB, ONGOING: YES
     Route: 048
     Dates: start: 20190322

REACTIONS (3)
  - Fatigue [Unknown]
  - Pulmonary oedema [Unknown]
  - Decreased appetite [Unknown]
